FAERS Safety Report 16041100 (Version 1)
Quarter: 2019Q1

REPORT INFORMATION
  Report Type: Spontaneous
  Country: US (occurrence: US)
  Receive Date: 20190206
  Receipt Date: 20190206
  Transmission Date: 20190418
  Serious: No
  Sender: FDA-Public Use
  Company Number: None

PATIENT
  Age: 64 Year
  Sex: Male
  Weight: 111.13 kg

DRUGS (1)
  1. SUCRAID [Suspect]
     Active Substance: SACROSIDASE
     Indication: SUCRASE-ISOMALTASE DEFICIENCY
     Dosage: ?          OTHER DOSE:8500 UNIT;OTHER FREQUENCY:2ML 6 TIMES A DAY;?
     Route: 048
     Dates: start: 20181127

REACTIONS (2)
  - Drug ineffective [None]
  - Flank pain [None]

NARRATIVE: CASE EVENT DATE: 20190108
